FAERS Safety Report 13720410 (Version 2)
Quarter: 2017Q4

REPORT INFORMATION
  Report Type: Report from Study
  Country: BR (occurrence: BR)
  Receive Date: 20170706
  Receipt Date: 20171121
  Transmission Date: 20180320
  Serious: Yes (Other)
  Sender: FDA-Public Use
  Company Number: BR-ROCHE-1958868

PATIENT
  Sex: Male
  Weight: 101 kg

DRUGS (10)
  1. PANTOPRAZOL [Concomitant]
     Active Substance: PANTOPRAZOLE SODIUM
     Indication: GASTRIC DISORDER
     Dosage: 1 DF, QD
     Route: 065
     Dates: start: 20170614
  2. BUSONID [Concomitant]
     Active Substance: BUDESONIDE
     Indication: ASTHMA
     Dosage: 2 DF, QD
     Route: 055
     Dates: start: 20150620
  3. LOSARTAN. [Concomitant]
     Active Substance: LOSARTAN
     Indication: HYPERTENSION
     Dosage: 1 DF, QD (4 YEARS AGO)
     Route: 048
  4. ALENIA (BRAZIL) [Concomitant]
     Active Substance: BUDESONIDE\FORMOTEROL FUMARATE
     Indication: ASTHMA
     Dosage: 2 DF (12X400UG), QD
     Route: 055
     Dates: start: 20140613
  5. BAMIFIX [Concomitant]
     Active Substance: BAMIFYLLINE HYDROCHLORIDE
     Indication: ASTHMA
     Dosage: 2 DF, QD
     Route: 048
     Dates: start: 20150423
  6. DOMPERIDONA [Concomitant]
     Indication: GASTRIC DISORDER
     Dosage: 3 DF, QD
     Route: 048
     Dates: start: 2015
  7. XOLAIR [Suspect]
     Active Substance: OMALIZUMAB
     Dosage: 1 DF (1 X 150 MG AMPOULE), QMO
     Route: 058
  8. SPIRIVA [Concomitant]
     Active Substance: TIOTROPIUM BROMIDE MONOHYDRATE
     Indication: ASTHMA
     Dosage: 1 DF, QD
     Route: 055
     Dates: start: 20161027, end: 20170609
  9. XOLAIR [Suspect]
     Active Substance: OMALIZUMAB
     Indication: ASTHMA
     Route: 058
     Dates: start: 201602
  10. DOXAZOSIN [Concomitant]
     Active Substance: DOXAZOSIN\DOXAZOSIN MESYLATE
     Indication: BENIGN PROSTATIC HYPERPLASIA
     Dosage: 1 DF, QD (FOR 1 YEAR)
     Route: 048

REACTIONS (6)
  - Lung infection [Recovering/Resolving]
  - Hypotension [Recovering/Resolving]
  - Sinusitis [Recovering/Resolving]
  - Incorrect dose administered [Unknown]
  - Weight increased [Unknown]
  - Upper respiratory tract congestion [Recovering/Resolving]
